FAERS Safety Report 20814093 (Version 1)
Quarter: 2022Q2

REPORT INFORMATION
  Report Type: Spontaneous
  Country: CA (occurrence: CA)
  Receive Date: 20220511
  Receipt Date: 20220511
  Transmission Date: 20220721
  Serious: Yes (Hospitalization, Other)
  Sender: FDA-Public Use
  Company Number: CA-PFIZER INC-202200661383

PATIENT
  Age: 86 Year
  Sex: Female

DRUGS (19)
  1. CALCIUM CHLORIDE [Suspect]
     Active Substance: CALCIUM CHLORIDE
     Dosage: 500 MG, 2X/DAY
  2. ADVAIR HFA [Suspect]
     Active Substance: FLUTICASONE PROPIONATE\SALMETEROL XINAFOATE
     Dosage: 2 DF, 2X/DAY
     Route: 055
  3. CANDESARTAN [Suspect]
     Active Substance: CANDESARTAN
     Dosage: 8 MG, 1X/DAY
     Route: 048
  4. DEXILANT [Suspect]
     Active Substance: DEXLANSOPRAZOLE
     Dosage: 30 MG, 1X/DAY
     Route: 065
  5. FERROUS SULFATE ANHYDROUS [Suspect]
     Active Substance: FERROUS SULFATE ANHYDROUS
     Dosage: 300 MG, 1X/DAY
     Route: 065
  6. K-DUR [Suspect]
     Active Substance: POTASSIUM CHLORIDE
     Dosage: 20 MEQ, 1X/DAY
     Route: 065
  7. LACTULOSE [Suspect]
     Active Substance: LACTULOSE
     Route: 065
  8. LASIX [Suspect]
     Active Substance: FUROSEMIDE
     Dosage: 20 MG, 1X/DAY
     Route: 065
  9. MEPOLIZUMAB [Suspect]
     Active Substance: MEPOLIZUMAB
     Indication: Asthma
     Dosage: 100 MG, MONTHLY
     Route: 065
  10. METOCLOPRAMIDE HYDROCHLORIDE [Suspect]
     Active Substance: METOCLOPRAMIDE HYDROCHLORIDE
     Route: 065
  11. METOCLOPRAMIDE [Suspect]
     Active Substance: METOCLOPRAMIDE
     Route: 065
  12. NASONEX [Suspect]
     Active Substance: MOMETASONE FUROATE
     Dosage: 2 DF, 1X/DAY
     Route: 065
  13. NASONEX [Suspect]
     Active Substance: MOMETASONE FUROATE
     Dosage: 2 DF, 2X/DAY
     Route: 065
  14. QUETIAPINE FUMARATE [Suspect]
     Active Substance: QUETIAPINE FUMARATE
     Dosage: 12.5 MG
     Route: 048
  15. QUETIAPINE [Suspect]
     Active Substance: QUETIAPINE
     Dosage: 12.5 MG
     Route: 048
  16. THEOPHYLLINE [Suspect]
     Active Substance: THEOPHYLLINE
     Dosage: 400 MG, 1X/DAY
     Route: 065
  17. TYLENOL [Suspect]
     Active Substance: ACETAMINOPHEN
  18. UNIPHYL [Suspect]
     Active Substance: THEOPHYLLINE ANHYDROUS
     Dosage: 400 MG, 1X/DAY
  19. ALBUTEROL SULFATE [Suspect]
     Active Substance: ALBUTEROL SULFATE
     Route: 045

REACTIONS (15)
  - Accident [Recovered/Resolved]
  - Asthma [Recovered/Resolved]
  - Cough [Recovered/Resolved]
  - Dyspnoea [Recovered/Resolved]
  - Fall [Recovered/Resolved]
  - Flail chest [Recovered/Resolved]
  - Loss of personal independence in daily activities [Recovered/Resolved]
  - Lower limb fracture [Recovered/Resolved]
  - Lung perforation [Recovered/Resolved]
  - Pneumonia [Recovered/Resolved]
  - Rhinorrhoea [Recovered/Resolved]
  - Rib fracture [Recovered/Resolved]
  - Sputum discoloured [Recovered/Resolved]
  - Thoracic operation [Recovered/Resolved]
  - Wheezing [Recovered/Resolved]
